FAERS Safety Report 8344928-9 (Version None)
Quarter: 2012Q2

REPORT INFORMATION
  Report Type: 
  Country: None (occurrence: None)
  Receive Date: 20120508
  Receipt Date: 20090417
  Transmission Date: 20120825
  Serious: Yes (Other)
  Sender: FDA-Public Use
  Company Number: US-TEVA-2009004157

PATIENT
  Sex: Female

DRUGS (1)
  1. AMRIX [Suspect]
     Route: 048

REACTIONS (1)
  - CONVULSION [None]
